FAERS Safety Report 10843100 (Version 1)
Quarter: 2015Q1

REPORT INFORMATION
  Report Type: Report from Study
  Country: US (occurrence: US)
  Receive Date: 20150220
  Receipt Date: 20150220
  Transmission Date: 20150721
  Serious: No
  Sender: FDA-Public Use
  Company Number: US-ABBVIE-14P-163-1257479-00

PATIENT
  Sex: Female
  Weight: 90.35 kg

DRUGS (13)
  1. HUMIRA [Suspect]
     Active Substance: ADALIMUMAB
     Indication: PSORIASIS
     Dates: start: 2013
  2. BENZTROPINE [Concomitant]
     Active Substance: BENZTROPINE
     Indication: TREMOR
  3. LEVOTHYROXINE [Concomitant]
     Active Substance: LEVOTHYROXINE
     Indication: HYPOTHYROIDISM
  4. GABAPENTIN. [Concomitant]
     Active Substance: GABAPENTIN
     Indication: FIBROMYALGIA
  5. IRON [Concomitant]
     Active Substance: IRON
     Indication: PRODUCT USED FOR UNKNOWN INDICATION
  6. FLAXSEED [Concomitant]
     Active Substance: FLAX SEED
     Indication: PRODUCT USED FOR UNKNOWN INDICATION
  7. VENLAFAXINE [Concomitant]
     Active Substance: VENLAFAXINE HYDROCHLORIDE
     Indication: PRODUCT USED FOR UNKNOWN INDICATION
  8. FOLIC ACID. [Concomitant]
     Active Substance: FOLIC ACID
     Indication: PRODUCT USED FOR UNKNOWN INDICATION
  9. PROTEIN DRINKS [Concomitant]
     Indication: PROTEIN DEFICIENCY
  10. METOTREXATE [Concomitant]
     Active Substance: METHOTREXATE SODIUM
     Indication: PSORIATIC ARTHROPATHY
  11. BACLOFEN. [Concomitant]
     Active Substance: BACLOFEN
     Indication: GASTROOESOPHAGEAL REFLUX DISEASE
  12. HUMIRA [Suspect]
     Active Substance: ADALIMUMAB
     Indication: PSORIATIC ARTHROPATHY
  13. MORPHINE SULF [Concomitant]
     Indication: PAIN

REACTIONS (2)
  - Urinary tract infection [Recovered/Resolved]
  - Ear lobe infection [Not Recovered/Not Resolved]

NARRATIVE: CASE EVENT DATE: 2013
